FAERS Safety Report 13947007 (Version 1)
Quarter: 2017Q3

REPORT INFORMATION
  Report Type: Spontaneous
  Country: US (occurrence: US)
  Receive Date: 20170907
  Receipt Date: 20170907
  Transmission Date: 20171128
  Serious: Yes (Other)
  Sender: FDA-Public Use
  Company Number: US-GLAXOSMITHKLINE-US2017GSK137134

PATIENT
  Age: 72 Year
  Sex: Male

DRUGS (1)
  1. ADVAIR DISKUS [Suspect]
     Active Substance: FLUTICASONE PROPIONATE\SALMETEROL XINAFOATE
     Indication: ASTHMA

REACTIONS (4)
  - Asthenia [Not Recovered/Not Resolved]
  - Drug dose omission [Unknown]
  - Product availability issue [Unknown]
  - Pneumonia [Unknown]

NARRATIVE: CASE EVENT DATE: 201708
